FAERS Safety Report 5566828-X (Version None)
Quarter: 2007Q4

REPORT INFORMATION
  Report Type: 
  Country: None (occurrence: None)
  Receive Date: 20071219
  Receipt Date: 20071218
  Transmission Date: 20080405
  Serious: Yes (Other)
  Sender: FDA-Public Use
  Company Number: B0500244A

PATIENT
  Age: 5 Year

DRUGS (2)
  1. ACYCLOVIR [Suspect]
     Indication: ENCEPHALOPATHY
     Dosage: 500MGM2 PER DAY
     Route: 042
  2. CEFOTAXIME [Concomitant]
     Dosage: 3600MGK PER DAY

REACTIONS (2)
  - EXTRAPYRAMIDAL DISORDER [None]
  - HALLUCINATION [None]
